FAERS Safety Report 18723744 (Version 1)
Quarter: 2021Q1

REPORT INFORMATION
  Report Type: Spontaneous
  Country: US (occurrence: US)
  Receive Date: 20210108
  Receipt Date: 20210108
  Transmission Date: 20210419
  Serious: Yes (Hospitalization)
  Sender: FDA-Public Use
  Company Number: None

PATIENT
  Sex: Female
  Weight: 79.4 kg

DRUGS (1)
  1. TEMOZOLOMIDE. [Suspect]
     Active Substance: TEMOZOLOMIDE
     Dates: end: 20201206

REACTIONS (6)
  - Urinary tract infection [None]
  - Magnetic resonance imaging abnormal [None]
  - Seizure [None]
  - Hemiparesis [None]
  - Confusional state [None]
  - Speech disorder [None]

NARRATIVE: CASE EVENT DATE: 20201226
